FAERS Safety Report 4744355-7 (Version None)
Quarter: 2005Q3

REPORT INFORMATION
  Report Type: 
  Country: None (occurrence: None)
  Receive Date: 20050812
  Receipt Date: 20050413
  Transmission Date: 20060218
  Serious: Yes (Hospitalization)
  Sender: FDA-Public Use
  Company Number: US-MERCK-0504USA02022

PATIENT
  Age: 63 Year
  Sex: Female
  Weight: 79 kg

DRUGS (6)
  1. VIOXX [Suspect]
     Indication: OSTEOARTHRITIS
     Route: 048
     Dates: start: 20010223, end: 20020501
  2. PRAVACHOL [Concomitant]
     Indication: BLOOD CHOLESTEROL INCREASED
     Route: 048
     Dates: start: 19930620, end: 20040101
  3. PREMPRO [Concomitant]
     Indication: MENOPAUSE
     Route: 048
     Dates: start: 19930101, end: 20030101
  4. GLUCOTROL [Concomitant]
     Indication: DIABETES MELLITUS
     Route: 048
  5. CELEBREX [Suspect]
     Indication: OSTEOARTHRITIS
     Route: 048
     Dates: end: 20010223
  6. CELEBREX [Suspect]
     Route: 048
     Dates: start: 20020502

REACTIONS (7)
  - DEPRESSION [None]
  - DIABETES MELLITUS [None]
  - GASTROOESOPHAGEAL REFLUX DISEASE [None]
  - INFECTION [None]
  - MYOCARDIAL INFARCTION [None]
  - RENAL DISORDER [None]
  - VULVOVAGINAL MYCOTIC INFECTION [None]
